FAERS Safety Report 13236318 (Version 1)
Quarter: 2017Q1

REPORT INFORMATION
  Report Type: Other
  Country: US (occurrence: US)
  Receive Date: 20170215
  Receipt Date: 20170215
  Transmission Date: 20170428
  Serious: Yes (Other)
  Sender: FDA-Public Use
  Company Number: US-APOTEX-2017AP006772

PATIENT
  Sex: Female

DRUGS (33)
  1. TRAZODONE HYDROCHLORIDE. [Suspect]
     Active Substance: TRAZODONE HYDROCHLORIDE
     Indication: BIPOLAR DISORDER
     Route: 065
  2. CLOZAPINE. [Suspect]
     Active Substance: CLOZAPINE
     Indication: BIPOLAR DISORDER
  3. PAROXETINE HYDROCHLORIDE. [Suspect]
     Active Substance: PAROXETINE HYDROCHLORIDE
     Indication: BIPOLAR DISORDER
     Route: 065
  4. CARBAMAZEPINE. [Suspect]
     Active Substance: CARBAMAZEPINE
     Indication: BIPOLAR DISORDER
     Route: 065
  5. ALPRAZOLAM. [Suspect]
     Active Substance: ALPRAZOLAM
     Indication: BIPOLAR DISORDER
     Route: 065
  6. BENZTROPINE [Suspect]
     Active Substance: BENZTROPINE
     Indication: BIPOLAR DISORDER
     Route: 065
  7. TEMAZEPAM. [Suspect]
     Active Substance: TEMAZEPAM
     Indication: BIPOLAR DISORDER
     Route: 065
  8. HALOPERIDOL. [Suspect]
     Active Substance: HALOPERIDOL
     Indication: BIPOLAR DISORDER
     Route: 065
  9. LAMOTRIGINE. [Suspect]
     Active Substance: LAMOTRIGINE
     Indication: BIPOLAR DISORDER
     Route: 065
  10. LORAZEPAM. [Suspect]
     Active Substance: LORAZEPAM
     Indication: BIPOLAR DISORDER
     Route: 065
  11. BUPROPION HYDROCHLORIDE. [Suspect]
     Active Substance: BUPROPION HYDROCHLORIDE
     Indication: BIPOLAR DISORDER
     Route: 065
  12. ZIPRASIDONE HCL [Suspect]
     Active Substance: ZIPRASIDONE HYDROCHLORIDE
     Indication: BIPOLAR DISORDER
     Route: 065
  13. DIAZEPAM. [Suspect]
     Active Substance: DIAZEPAM
     Indication: BIPOLAR DISORDER
     Route: 065
  14. QUETIAPINE FUMARATE. [Suspect]
     Active Substance: QUETIAPINE FUMARATE
     Indication: BIPOLAR DISORDER
     Route: 065
  15. CITALOPRAM [Suspect]
     Active Substance: CITALOPRAM HYDROBROMIDE
     Indication: BIPOLAR DISORDER
     Route: 065
  16. CLONAZEPAM TABLETS USP [Suspect]
     Active Substance: CLONAZEPAM
     Indication: BIPOLAR DISORDER
     Route: 065
  17. NEFAZODONE [Suspect]
     Active Substance: NEFAZODONE
     Indication: BIPOLAR DISORDER
     Route: 065
  18. TRIAZOLAM. [Suspect]
     Active Substance: TRIAZOLAM
     Indication: BIPOLAR DISORDER
     Route: 065
  19. ARIPIPRAZOLE TABLETS [Suspect]
     Active Substance: ARIPIPRAZOLE
     Indication: BIPOLAR DISORDER
  20. DULOXETINE HYDROCHLORIDE DELAYED-RELEASE CAPSULES [Suspect]
     Active Substance: DULOXETINE HYDROCHLORIDE
     Indication: BIPOLAR DISORDER
     Route: 065
  21. LITHIUM. [Suspect]
     Active Substance: LITHIUM
     Indication: BIPOLAR DISORDER
     Route: 065
  22. LOXAPINE. [Suspect]
     Active Substance: LOXAPINE
     Indication: BIPOLAR DISORDER
     Route: 065
  23. DOXEPINE [Suspect]
     Active Substance: DOXEPIN
     Indication: BIPOLAR DISORDER
     Route: 065
  24. VENLAFAXINE [Suspect]
     Active Substance: VENLAFAXINE HYDROCHLORIDE
     Indication: BIPOLAR DISORDER
     Route: 065
  25. TRIHEXYPHENIDYL [Suspect]
     Active Substance: TRIHEXYPHENIDYL
     Indication: BIPOLAR DISORDER
     Route: 065
  26. RISPERIDONE. [Suspect]
     Active Substance: RISPERIDONE
     Indication: BIPOLAR DISORDER
  27. ESCITALOPRAM OXALATE. [Suspect]
     Active Substance: ESCITALOPRAM OXALATE
     Indication: BIPOLAR DISORDER
     Route: 065
  28. DIVALPROEX SODIUM DELAYED-RELEASE TABLETS USP [Suspect]
     Active Substance: DIVALPROEX SODIUM
     Indication: BIPOLAR DISORDER
     Route: 065
  29. OXCARBAZEPINE. [Suspect]
     Active Substance: OXCARBAZEPINE
     Indication: BIPOLAR DISORDER
     Route: 065
  30. TOPIRAMATE. [Suspect]
     Active Substance: TOPIRAMATE
     Indication: BIPOLAR DISORDER
     Route: 065
  31. CHLORPROMAZINE. [Suspect]
     Active Substance: CHLORPROMAZINE
     Indication: BIPOLAR DISORDER
     Route: 065
  32. CHLORAL HYDRATE [Suspect]
     Active Substance: CHLORAL HYDRATE
     Indication: BIPOLAR DISORDER
     Route: 065
  33. PHENOBARBITAL. [Suspect]
     Active Substance: PHENOBARBITAL
     Indication: BIPOLAR DISORDER
     Route: 065

REACTIONS (5)
  - Hypomania [Unknown]
  - Depression [Unknown]
  - Therapy cessation [Unknown]
  - Suicide attempt [Unknown]
  - Drug resistance [Unknown]
